FAERS Safety Report 6228953-X (Version None)
Quarter: 2009Q2

REPORT INFORMATION
  Report Type: 
  Country: None (occurrence: None)
  Receive Date: 20090615
  Receipt Date: 20090601
  Transmission Date: 20091009
  Serious: Yes (Other)
  Sender: FDA-Public Use
  Company Number: CA-JNJFOC-20090601042

PATIENT
  Age: 33 Year

DRUGS (2)
  1. REMICADE [Suspect]
     Indication: DRUG USE FOR UNKNOWN INDICATION
     Route: 042
  2. AZATHIOPRINE [Concomitant]

REACTIONS (1)
  - HEPATOSPLENIC T-CELL LYMPHOMA [None]
